FAERS Safety Report 10212554 (Version 1)
Quarter: 2014Q2

REPORT INFORMATION
  Report Type: Spontaneous
  Country: US (occurrence: US)
  Receive Date: 20140602
  Receipt Date: 20140602
  Transmission Date: 20141212
  Serious: No
  Sender: FDA-Public Use
  Company Number: US-AMGEN-USASP2014035749

PATIENT
  Age: 63 Year
  Sex: Female

DRUGS (2)
  1. ENBREL [Suspect]
     Indication: PSORIASIS
     Dosage: 50 MG, QWK
     Route: 065
     Dates: start: 20001214
  2. ENBREL [Suspect]

REACTIONS (4)
  - Arthritis [Not Recovered/Not Resolved]
  - Scar [Not Recovered/Not Resolved]
  - Injection site pain [Recovered/Resolved]
  - Injection site coldness [Recovered/Resolved]
